FAERS Safety Report 13977459 (Version 3)
Quarter: 2018Q1

REPORT INFORMATION
  Report Type: Spontaneous
  Country: US (occurrence: US)
  Receive Date: 20170915
  Receipt Date: 20180103
  Transmission Date: 20180508
  Serious: Yes (Hospitalization, Other)
  Sender: FDA-Public Use
  Company Number: US-BRISTOL-MYERS SQUIBB COMPANY-BMS-2017-080283

PATIENT
  Age: 42 Year
  Sex: Male
  Weight: 93.9 kg

DRUGS (3)
  1. YERVOY [Suspect]
     Active Substance: IPILIMUMAB
     Indication: SKIN NEOPLASM EXCISION
     Route: 065
  2. ALPRAZOLAM. [Concomitant]
     Active Substance: ALPRAZOLAM
     Indication: ANXIETY
     Dosage: 0.5 MG, Q6H
     Route: 048
  3. YERVOY [Suspect]
     Active Substance: IPILIMUMAB
     Indication: MALIGNANT MELANOMA
     Dosage: 939 MG, UNK
     Route: 042
     Dates: start: 20170512, end: 20170630

REACTIONS (6)
  - Toxicity to various agents [Unknown]
  - Diarrhoea [Recovered/Resolved]
  - Hypothalamo-pituitary disorder [Unknown]
  - Hypophysitis [Not Recovered/Not Resolved]
  - Headache [Recovered/Resolved]
  - Prescribed overdose [Unknown]

NARRATIVE: CASE EVENT DATE: 20170610
